FAERS Safety Report 8481197 (Version 3)
Quarter: 2014Q3

REPORT INFORMATION
  Report Type: Spontaneous
  Country: IL (occurrence: IL)
  Receive Date: 20120329
  Receipt Date: 20140729
  Transmission Date: 20150326
  Serious: Yes (Hospitalization, Other)
  Sender: FDA-Public Use
  Company Number: IL-RANBAXY-2012RR-54174

PATIENT
  Age: 82 Year
  Sex: Female

DRUGS (1)
  1. METFORMIN [Suspect]
     Active Substance: METFORMIN HYDROCHLORIDE
     Indication: TYPE 2 DIABETES MELLITUS
     Dosage: 850 MG, QD
     Route: 048

REACTIONS (4)
  - Acute respiratory distress syndrome [Recovered/Resolved]
  - Lactic acidosis [Recovered/Resolved]
  - Renal failure acute [Recovered/Resolved]
  - Circulatory collapse [Recovered/Resolved]
